FAERS Safety Report 8181791-3 (Version None)
Quarter: 2012Q1

REPORT INFORMATION
  Report Type: 
  Country: None (occurrence: None)
  Receive Date: 20120302
  Receipt Date: 20111201
  Transmission Date: 20120608
  Serious: Yes (Other)
  Sender: FDA-Public Use
  Company Number: US-AMGEN-USASP2011020741

PATIENT
  Age: 68 Year
  Sex: Female
  Weight: 75.737 kg

DRUGS (3)
  1. RITUXIMAB [Concomitant]
  2. PREDNISONE TAB [Concomitant]
     Indication: IDIOPATHIC THROMBOCYTOPENIC PURPURA
     Dosage: 60 MG, QD
     Route: 048
     Dates: start: 20100908
  3. NPLATE [Suspect]
     Indication: THROMBOCYTOPENIA
     Dosage: 229 MUG, QWK
     Route: 058
     Dates: start: 20101015, end: 20110107

REACTIONS (4)
  - DYSPHAGIA [None]
  - SWOLLEN TONGUE [None]
  - ASTHENIA [None]
  - DRUG INEFFECTIVE [None]
